FAERS Safety Report 7492066-X (Version None)
Quarter: 2011Q2

REPORT INFORMATION
  Report Type: 
  Country: None (occurrence: None)
  Receive Date: 20110519
  Receipt Date: 20110509
  Transmission Date: 20111010
  Serious: Yes (Other)
  Sender: FDA-Public Use
  Company Number: ES-UCBSA-032398

PATIENT
  Age: 86 Year
  Sex: Female

DRUGS (1)
  1. NORPRAMIN [Suspect]
     Indication: GASTRITIS
     Route: 048
     Dates: start: 20050201, end: 20100401

REACTIONS (1)
  - BREAST ENLARGEMENT [None]
